FAERS Safety Report 18785311 (Version 3)
Quarter: 2022Q2

REPORT INFORMATION
  Report Type: Spontaneous
  Country: US (occurrence: US)
  Receive Date: 20210125
  Receipt Date: 20220616
  Transmission Date: 20220720
  Serious: Yes (Death, Hospitalization, Other)
  Sender: FDA-Public Use
  Company Number: US-009507513-2101USA009310

PATIENT
  Age: 73 Year
  Sex: Male

DRUGS (5)
  1. KEYTRUDA [Suspect]
     Active Substance: PEMBROLIZUMAB
     Indication: Prostate cancer metastatic
     Dosage: UNKNOWN DOSE SPECIFIED EVERY 3 WEEKS
     Route: 042
     Dates: start: 201801
  2. KEYTRUDA [Suspect]
     Active Substance: PEMBROLIZUMAB
     Dosage: 200 MILLIGRAM, EVERY 3 WEEKS
     Route: 042
     Dates: start: 20200219
  3. KEYTRUDA [Suspect]
     Active Substance: PEMBROLIZUMAB
     Dosage: 200 MILLIGRAM, EVERY 3 WEEKS
     Route: 042
     Dates: start: 20200422, end: 20200603
  4. KEYTRUDA [Suspect]
     Active Substance: PEMBROLIZUMAB
     Dosage: 400 MILLIGRAM, EVERY 6 WEEKS
     Route: 042
     Dates: start: 20200624
  5. VELCADE [Suspect]
     Active Substance: BORTEZOMIB
     Indication: Plasma cell myeloma
     Dosage: EVERY 2 WEEKS, HAD 19 SHOTS
     Dates: start: 2019, end: 2020

REACTIONS (10)
  - Malignant neoplasm progression [Fatal]
  - Malignant melanoma [Unknown]
  - Plasma cell myeloma [Unknown]
  - Pneumonia [Unknown]
  - Inhibitory drug interaction [Unknown]
  - Fatigue [Unknown]
  - Diarrhoea [Unknown]
  - Drug effective for unapproved indication [Unknown]
  - Product use issue [Unknown]
  - Off label use [Unknown]

NARRATIVE: CASE EVENT DATE: 20180101
